FAERS Safety Report 23508837 (Version 1)
Quarter: 2024Q1

REPORT INFORMATION
  Report Type: Spontaneous
  Country: NL (occurrence: NL)
  Receive Date: 20240209
  Receipt Date: 20240209
  Transmission Date: 20240409
  Serious: Yes (Other)
  Sender: FDA-Public Use
  Company Number: None

PATIENT
  Age: 68 Year
  Sex: Male
  Weight: 95 kg

DRUGS (9)
  1. ROSUVASTATIN [Suspect]
     Active Substance: ROSUVASTATIN
     Indication: Hypercholesterolaemia
     Route: 065
     Dates: start: 20220531, end: 20230801
  2. NOVORAPID [Concomitant]
     Active Substance: INSULIN ASPART
     Indication: Product used for unknown indication
     Dosage: INJVLST 100U/ML / NOVORAPID FLEXPEN INJVLST 100U/ML PEN 3ML
     Route: 065
  3. CITALOPRAM [Concomitant]
     Active Substance: CITALOPRAM HYDROBROMIDE
     Indication: Product used for unknown indication
     Dosage: TAKE 40 MG BY MOUTH EVERY MORNING WITH BREAKFAST.
     Route: 065
  4. OMEPRAZOLE [Concomitant]
     Active Substance: OMEPRAZOLE
     Indication: Product used for unknown indication
     Route: 065
  5. CHOLECALCIFEROL [Concomitant]
     Active Substance: CHOLECALCIFEROL
     Indication: Product used for unknown indication
     Dosage: CAPSULE TAKE 1 CAPSULE BY MOUTH ONCE A WEEK ON MONDAY?COLECALCIFEROL CAPSULE 5600IE / BRAND NAME ...
     Route: 065
  6. METRONIDAZOLE [Concomitant]
     Active Substance: METRONIDAZOLE
     Indication: Product used for unknown indication
     Route: 062
  7. NITROGLYCERIN [Concomitant]
     Active Substance: NITROGLYCERIN
     Indication: Product used for unknown indication
     Dosage: 1 SPRAY AS NEEDED FOR CHEST PAIN.
     Route: 060
  8. TRESIBA [Concomitant]
     Active Substance: INSULIN DEGLUDEC
     Indication: Product used for unknown indication
     Dosage: 72 UNITS IN THE EVENING 8 P.M?INSULIN DEGLUDEC 200U/ML INJVLST / TRESIBA FLEXTOUCH INJVLST 200U/M...
     Route: 065
  9. ASPIRIN [Concomitant]
     Active Substance: ASPIRIN
     Indication: Product used for unknown indication
     Dosage: TAKE 80 MG BY MOUTH EVERY MORNING WITH BREAKFAST
     Route: 065

REACTIONS (1)
  - Syncope [Recovered/Resolved]
